FAERS Safety Report 16766611 (Version 1)
Quarter: 2019Q3

REPORT INFORMATION
  Report Type: Spontaneous
  Country: GB (occurrence: GB)
  Receive Date: 20190903
  Receipt Date: 20190903
  Transmission Date: 20191005
  Serious: Yes (Life-Threatening)
  Sender: FDA-Public Use
  Company Number: GB-PFIZER INC-2019375766

PATIENT
  Age: 56 Year
  Sex: Female
  Weight: 89 kg

DRUGS (8)
  1. CLOBAZAM. [Concomitant]
     Active Substance: CLOBAZAM
     Dosage: TAKE ONE OR TWO TABLETS FOUR TO SIX HOURLY
     Dates: start: 20181213
  2. DOXAZOSIN MESILATE [Suspect]
     Active Substance: DOXAZOSIN MESYLATE
     Dosage: 2 MG, DAILY
     Dates: start: 20190805
  3. RAMIPRIL. [Concomitant]
     Active Substance: RAMIPRIL
     Dosage: 1 DF, 1X/DAY
     Dates: start: 20190315
  4. ATENOLOL. [Concomitant]
     Active Substance: ATENOLOL
     Dosage: 2 DF, DAILY
     Dates: start: 20190429
  5. LEVETIRACETAM. [Concomitant]
     Active Substance: LEVETIRACETAM
     Dosage: 4 DF, DAILY
     Dates: start: 20181213
  6. MIDAZOLAM MALEATE [Concomitant]
     Active Substance: MIDAZOLAM MALEATE
     Dosage: USE AS DIRECTED
     Dates: start: 20190624, end: 20190625
  7. INDAPAMIDE. [Concomitant]
     Active Substance: INDAPAMIDE
     Dosage: 1 DF, 1X/DAY EACH MORNING
     Dates: start: 20190712
  8. LAMOTRIGINE. [Concomitant]
     Active Substance: LAMOTRIGINE
     Dosage: 4 DF, DAILY
     Dates: start: 20181213

REACTIONS (1)
  - Hypotension [Recovering/Resolving]

NARRATIVE: CASE EVENT DATE: 20190806
